FAERS Safety Report 16010001 (Version 1)
Quarter: 2019Q1

REPORT INFORMATION
  Report Type: Spontaneous
  Country: US (occurrence: US)
  Receive Date: 20190225
  Receipt Date: 20190225
  Transmission Date: 20190418
  Serious: Yes (Other)
  Sender: FDA-Public Use
  Company Number: PHEH2019US008196

PATIENT
  Sex: Male

DRUGS (1)
  1. GILENYA [Suspect]
     Active Substance: FINGOLIMOD HYDROCHLORIDE
     Indication: RELAPSING MULTIPLE SCLEROSIS
     Route: 065

REACTIONS (5)
  - Coordination abnormal [Unknown]
  - Gait disturbance [Unknown]
  - Rotator cuff syndrome [Unknown]
  - Limb discomfort [Unknown]
  - Fall [Unknown]
